FAERS Safety Report 9451479 (Version 1)
Quarter: 2013Q3

REPORT INFORMATION
  Report Type: Spontaneous
  Country: US (occurrence: US)
  Receive Date: 20130810
  Receipt Date: 20130810
  Transmission Date: 20140515
  Serious: Yes (Other)
  Sender: FDA-Public Use
  Company Number: US-ROCHE-1257784

PATIENT
  Sex: Female

DRUGS (6)
  1. CLONAZEPAM [Suspect]
     Indication: INSOMNIA
     Route: 048
  2. CLONAZEPAM [Suspect]
     Indication: MANIA
  3. DEPAKOTE [Suspect]
     Indication: PRODUCT USED FOR UNKNOWN INDICATION
     Route: 065
  4. PAXIL [Suspect]
     Indication: PRODUCT USED FOR UNKNOWN INDICATION
     Route: 065
  5. FOLIC ACID [Concomitant]
  6. ZYPREXA [Concomitant]

REACTIONS (20)
  - Brain injury [Unknown]
  - Withdrawal syndrome [Recovered/Resolved]
  - Abdominal rigidity [Recovered/Resolved]
  - Energy increased [Not Recovered/Not Resolved]
  - Weight increased [Not Recovered/Not Resolved]
  - Temperature regulation disorder [Recovering/Resolving]
  - Disturbance in attention [Not Recovered/Not Resolved]
  - Drug ineffective [Unknown]
  - Muscle spasms [Not Recovered/Not Resolved]
  - Injury [Not Recovered/Not Resolved]
  - Euphoric mood [Not Recovered/Not Resolved]
  - Somnolence [Not Recovered/Not Resolved]
  - Pain in extremity [Not Recovered/Not Resolved]
  - Balance disorder [Unknown]
  - Physical assault [Unknown]
  - Plantar fasciitis [Unknown]
  - Malnutrition [Unknown]
  - Anger [Unknown]
  - Dependence [Unknown]
  - Victim of sexual abuse [Unknown]
